FAERS Safety Report 7986805-9 (Version None)
Quarter: 2011Q4

REPORT INFORMATION
  Report Type: 
  Country: None (occurrence: None)
  Receive Date: 20111216
  Receipt Date: 20110829
  Transmission Date: 20120403
  Serious: No
  Sender: FDA-Public Use
  Company Number: US-BRISTOL-MYERS SQUIBB COMPANY-16011561

PATIENT
  Age: 49 Year
  Sex: Male

DRUGS (1)
  1. ABILIFY [Suspect]
     Indication: AFFECTIVE DISORDER
     Dosage: 2.5MG,EVERY 3 MONTHS THE DOSAGE HAS BEEN INCREASING CURRENTLY TAKING 10MG

REACTIONS (1)
  - DIARRHOEA [None]
